FAERS Safety Report 15937527 (Version 1)
Quarter: 2019Q1

REPORT INFORMATION
  Report Type: Spontaneous
  Country: US (occurrence: US)
  Receive Date: 20190208
  Receipt Date: 20190208
  Transmission Date: 20190417
  Serious: Yes (Other)
  Sender: FDA-Public Use
  Company Number: US-HQ SPECIALTY-US-2019INT000026

PATIENT

DRUGS (1)
  1. TAXOL [Suspect]
     Active Substance: PACLITAXEL
     Indication: PRODUCT USED FOR UNKNOWN INDICATION
     Dosage: UNK
     Route: 065

REACTIONS (7)
  - Malignant neoplasm progression [Unknown]
  - Gastric ulcer [Unknown]
  - Cholecystitis [Unknown]
  - Pleural effusion [Unknown]
  - Pharyngitis bacterial [Unknown]
  - Osteonecrosis of jaw [Unknown]
  - Pulmonary embolism [Unknown]
